FAERS Safety Report 9680785 (Version 1)
Quarter: 2013Q4

REPORT INFORMATION
  Report Type: Spontaneous
  Country: MX (occurrence: MX)
  Receive Date: 20131111
  Receipt Date: 20131111
  Transmission Date: 20140711
  Serious: Yes (Other)
  Sender: FDA-Public Use
  Company Number: PHHY2013MX127482

PATIENT
  Age: 72 Year
  Sex: Female
  Weight: 70 kg

DRUGS (7)
  1. VOLTAREN RETARD [Suspect]
     Indication: ARTHRALGIA
     Dosage: 1 UKN, UNK
     Route: 048
  2. VOLTAREN RETARD [Suspect]
     Indication: SPINAL PAIN
  3. NAPROXEN [Concomitant]
     Indication: ARTHRALGIA
     Dosage: UNK UKN, UNK
     Route: 048
  4. ASPIRIN [Concomitant]
     Indication: ARTHRALGIA
     Dosage: UNK UKN, UNK
     Route: 048
  5. ACETAMINOPHEN [Concomitant]
     Indication: ARTHRALGIA
     Dosage: UNK UKN, UNK
     Route: 048
  6. DICLOFENAC [Concomitant]
     Indication: ARTHRALGIA
     Dosage: 1 UKN, UNK
     Route: 048
  7. DICLOFENAC [Concomitant]
     Indication: SPINAL PAIN

REACTIONS (5)
  - Cholelithiasis [Not Recovered/Not Resolved]
  - Blood glucose increased [Recovered/Resolved]
  - Neuralgia [Not Recovered/Not Resolved]
  - Hypertension [Not Recovered/Not Resolved]
  - Abdominal discomfort [Not Recovered/Not Resolved]
